FAERS Safety Report 5267110-0 (Version None)
Quarter: 2007Q1

REPORT INFORMATION
  Report Type: 
  Country: None (occurrence: None)
  Receive Date: 20070316
  Receipt Date: 20070312
  Transmission Date: 20070707
  Serious: Yes (Hospitalization, Other)
  Sender: FDA-Public Use
  Company Number: 2007UW00709

PATIENT
  Age: 20 Year
  Sex: Male

DRUGS (2)
  1. ZOMIG [Suspect]
     Indication: MIGRAINE
     Route: 065
  2. DRAMIN [Concomitant]
     Indication: MIGRAINE

REACTIONS (2)
  - HYPERTENSIVE ENCEPHALOPATHY [None]
  - SEROTONIN SYNDROME [None]
